FAERS Safety Report 5915195 (Version 6)
Quarter: 2016Q2

REPORT INFORMATION
  Report Type: Spontaneous
  Country: JP (occurrence: JP)
  Receive Date: 20051101
  Receipt Date: 20160411
  Transmission Date: 20160815
  Serious: Yes (Hospitalization)
  Sender: FDA-Public Use
  Company Number: PHBS2004JP08558

PATIENT
  Age: 38 Year
  Sex: Male

DRUGS (1)
  1. LAMISIL [Suspect]
     Active Substance: TERBINAFINE HYDROCHLORIDE
     Indication: DERMATOPHYTOSIS OF NAIL
     Dosage: 125 MG, QD
     Route: 048
     Dates: start: 20040408, end: 20040502

REACTIONS (24)
  - Renal impairment [Unknown]
  - Lymphadenopathy [Recovered/Resolved]
  - C-reactive protein increased [Unknown]
  - Skin infection [Unknown]
  - Streptococcal infection [Unknown]
  - Nausea [Recovered/Resolved]
  - Acute generalised exanthematous pustulosis [Recovered/Resolved]
  - Pyrexia [Recovered/Resolved]
  - Neutrophilia [Unknown]
  - Skin hypertrophy [Unknown]
  - Blood creatinine increased [Unknown]
  - Rash pustular [Recovered/Resolved]
  - Skin exfoliation [Recovered/Resolved]
  - Extravasation blood [Unknown]
  - Alanine aminotransferase increased [Unknown]
  - Streptokinase antibody increased [Unknown]
  - Human herpesvirus 6 infection [Unknown]
  - Subcorneal pustular dermatosis [Unknown]
  - Erythema [Recovered/Resolved]
  - Hepatic function abnormal [Unknown]
  - Rash erythematous [Recovered/Resolved]
  - Decreased appetite [Recovered/Resolved]
  - White blood cell count increased [Unknown]
  - Aspartate aminotransferase increased [Unknown]

NARRATIVE: CASE EVENT DATE: 20040428
